FAERS Safety Report 13716480 (Version 3)
Quarter: 2017Q4

REPORT INFORMATION
  Report Type: Report from Study
  Country: SG (occurrence: AU)
  Receive Date: 20170705
  Receipt Date: 20171030
  Transmission Date: 20180320
  Serious: Yes (Other)
  Sender: FDA-Public Use
  Company Number: SG-ROCHE-1958588

PATIENT
  Age: 83 Year
  Sex: Female

DRUGS (2)
  1. ALTEPLASE. [Suspect]
     Active Substance: ALTEPLASE
     Indication: ISCHAEMIC STROKE
     Dosage: 0.9 MG/KG, 10 % GIVEN AS BOLUS
     Route: 040
  2. ALTEPLASE. [Suspect]
     Active Substance: ALTEPLASE
     Dosage: 0.9 MG/KG, 90 % INFUSED OVER 1 HOUR
     Route: 041

REACTIONS (1)
  - Cerebral artery thrombosis [Unknown]
